FAERS Safety Report 24026835 (Version 1)
Quarter: 2024Q2

REPORT INFORMATION
  Report Type: Report from Study
  Country: IT (occurrence: IT)
  Receive Date: 20240628
  Receipt Date: 20240628
  Transmission Date: 20240716
  Serious: No
  Sender: FDA-Public Use
  Company Number: IT-ROCHE-3554207

PATIENT
  Age: 49 Year
  Sex: Female

DRUGS (1)
  1. ALECTINIB [Suspect]
     Active Substance: ALECTINIB
     Indication: Metastases to central nervous system
     Route: 065

REACTIONS (4)
  - Oedema [Unknown]
  - Musculoskeletal pain [Unknown]
  - Myalgia [Unknown]
  - Weight increased [Unknown]
